FAERS Safety Report 9152361 (Version 2)
Quarter: 2013Q2

REPORT INFORMATION
  Report Type: Spontaneous
  Country: GB (occurrence: GB)
  Receive Date: 20130308
  Receipt Date: 20130415
  Transmission Date: 20140414
  Serious: Yes (Other)
  Sender: FDA-Public Use
  Company Number: GB-ASTRAZENECA-2013SE13670

PATIENT
  Age: 83 Year
  Sex: Male
  Weight: 80 kg

DRUGS (1)
  1. ZOLADEX [Suspect]
     Route: 058

REACTIONS (1)
  - Haematoma infection [Unknown]
